FAERS Safety Report 8806027 (Version 2)
Quarter: 2013Q1

REPORT INFORMATION
  Report Type: Spontaneous
  Country: US (occurrence: US)
  Receive Date: 20120925
  Receipt Date: 20130108
  Transmission Date: 20140127
  Serious: Yes (Hospitalization, Other)
  Sender: FDA-Public Use
  Company Number: US-BAYER-2012-096791

PATIENT
  Age: 17 Year
  Sex: Female
  Weight: 58.96 kg

DRUGS (4)
  1. YAZ [Suspect]
     Indication: ACNE
     Dosage: UNK
     Dates: start: 200708, end: 200905
  2. YAZ [Suspect]
     Indication: CONTRACEPTION
  3. VICODIN [Concomitant]
  4. MULTIVITAMIN [Concomitant]

REACTIONS (4)
  - Cholelithiasis [None]
  - Nephrolithiasis [None]
  - Pain [None]
  - Pain [None]
